FAERS Safety Report 7717237-6 (Version None)
Quarter: 2011Q3

REPORT INFORMATION
  Report Type: 
  Country: None (occurrence: None)
  Receive Date: 20110826
  Receipt Date: 20110826
  Transmission Date: 20111222
  Serious: Yes (Hospitalization)
  Sender: FDA-Public Use
  Company Number: None

PATIENT
  Sex: Male
  Weight: 69.4 kg

DRUGS (3)
  1. CARBOPLATIN [Suspect]
     Dosage: 710 MG
  2. TAXOL [Suspect]
     Dosage: 360 MG
  3. BEVACIZUMAB (RHUMAB VEGF) [Suspect]
     Dosage: 1055 MG

REACTIONS (7)
  - URINARY TRACT INFECTION [None]
  - RENAL FAILURE ACUTE [None]
  - ASTHENIA [None]
  - HYPONATRAEMIA [None]
  - FATIGUE [None]
  - DEHYDRATION [None]
  - HAEMOPTYSIS [None]
